FAERS Safety Report 19828632 (Version 2)
Quarter: 2021Q3

REPORT INFORMATION
  Report Type: Report from Study
  Country: None (occurrence: US)
  Receive Date: 20210914
  Receipt Date: 20210919
  Transmission Date: 20211014
  Serious: Yes (Other)
  Sender: FDA-Public Use
  Company Number: US-ABBVIE-21K-163-4072351-00

PATIENT
  Age: 49 Year
  Sex: Male
  Weight: 72.64 kg

DRUGS (2)
  1. SKYRIZI [Suspect]
     Active Substance: RISANKIZUMAB-RZAA
     Indication: PSORIASIS
     Route: 058
     Dates: start: 202002, end: 202106
  2. SKYRIZI [Suspect]
     Active Substance: RISANKIZUMAB-RZAA
     Route: 058
     Dates: start: 2021

REACTIONS (4)
  - Dialysis [Unknown]
  - Application site discolouration [Unknown]
  - Application site irritation [Unknown]
  - Acne [Recovering/Resolving]

NARRATIVE: CASE EVENT DATE: 202108
